FAERS Safety Report 6741988-3 (Version None)
Quarter: 2010Q2

REPORT INFORMATION
  Report Type: 
  Country: None (occurrence: None)
  Receive Date: 20100526
  Receipt Date: 20100518
  Transmission Date: 20101027
  Serious: Yes (Hospitalization)
  Sender: FDA-Public Use
  Company Number: RU-WYE-H15221310

PATIENT
  Sex: Female
  Weight: 83 kg

DRUGS (2)
  1. TEMSIROLIMUS [Suspect]
     Indication: RENAL CANCER
     Route: 042
     Dates: start: 20091118, end: 20100511
  2. BEVACIZUMAB [Suspect]
     Indication: RENAL CANCER
     Route: 042
     Dates: start: 20091118, end: 20100511

REACTIONS (1)
  - PNEUMONIA [None]
